FAERS Safety Report 25009443 (Version 2)
Quarter: 2025Q2

REPORT INFORMATION
  Report Type: Spontaneous
  Country: AU (occurrence: AU)
  Receive Date: 20250225
  Receipt Date: 20250403
  Transmission Date: 20250716
  Serious: No
  Sender: TOLMAR
  Company Number: AU-TOLMAR, INC.-25AU056508

PATIENT

DRUGS (2)
  1. ELIGARD [Suspect]
     Active Substance: LEUPROLIDE ACETATE
     Indication: Product used for unknown indication
  2. ELIGARD [Suspect]
     Active Substance: LEUPROLIDE ACETATE
     Indication: Product used for unknown indication

REACTIONS (4)
  - Wrong technique in product usage process [Unknown]
  - Product administration error [Unknown]
  - Syringe issue [Unknown]
  - Device leakage [Unknown]
